FAERS Safety Report 20503292 (Version 1)
Quarter: 2022Q1

REPORT INFORMATION
  Report Type: Spontaneous
  Country: US (occurrence: US)
  Receive Date: 20220222
  Receipt Date: 20220222
  Transmission Date: 20220424
  Serious: Yes (Other)
  Sender: FDA-Public Use
  Company Number: US-SAOL THERAPEUTICS-2022SAO00041

PATIENT
  Sex: Male

DRUGS (1)
  1. LIORESAL [Suspect]
     Active Substance: BACLOFEN
     Indication: Dystonia
     Dosage: 705 ?G, \DAY
     Route: 037

REACTIONS (2)
  - Dystonia [Recovered/Resolved]
  - Device dislocation [Recovered/Resolved]
